FAERS Safety Report 23967019 (Version 5)
Quarter: 2025Q3

REPORT INFORMATION
  Report Type: Report from Study
  Country: EU (occurrence: EU)
  Receive Date: 20240612
  Receipt Date: 20250818
  Transmission Date: 20251021
  Serious: Yes (Congenital Anomaly, Other)
  Sender: TAKEDA
  Company Number: EU-TAKEDA-2024TUS026869

PATIENT
  Age: 25 Year
  Sex: Female
  Weight: 77 kg

DRUGS (10)
  1. VELAGLUCERASE ALFA [Suspect]
     Active Substance: VELAGLUCERASE ALFA
     Indication: Gaucher^s disease
     Dosage: 43.7 INTERNATIONAL UNIT/KILOGRAM, Q2WEEKS
     Dates: start: 20160527, end: 20171006
  2. VELAGLUCERASE ALFA [Suspect]
     Active Substance: VELAGLUCERASE ALFA
     Dosage: 43.7 INTERNATIONAL UNIT/KILOGRAM, Q2WEEKS
     Dates: start: 20180504, end: 20180801
  3. VELAGLUCERASE ALFA [Suspect]
     Active Substance: VELAGLUCERASE ALFA
     Dosage: 57 INTERNATIONAL UNIT/KILOGRAM, Q2WEEKS
     Dates: start: 20200131, end: 20210826
  4. VELAGLUCERASE ALFA [Suspect]
     Active Substance: VELAGLUCERASE ALFA
     Dosage: 51.7 INTERNATIONAL UNIT/KILOGRAM, Q2WEEKS
     Dates: start: 20210827, end: 20230101
  5. VELAGLUCERASE ALFA [Suspect]
     Active Substance: VELAGLUCERASE ALFA
     Dosage: 50.3 INTERNATIONAL UNIT/KILOGRAM, Q2WEEKS
     Dates: start: 20230324
  6. CHOLECALCIFEROL [Concomitant]
     Active Substance: CHOLECALCIFEROL
     Indication: Vitamin D deficiency
     Dosage: 1000 INTERNATIONAL UNIT, QD
     Dates: start: 202004
  7. FERRITIN [Concomitant]
     Active Substance: FERRITIN
     Indication: Iron deficiency
     Dosage: 280 MILLIGRAM, QD
     Dates: start: 202004
  8. FERRLECIT [Concomitant]
     Active Substance: SODIUM FERRIC GLUCONATE COMPLEX
     Indication: Iron deficiency
     Dosage: 280 MILLIGRAM, QD
     Dates: start: 202003, end: 20220616
  9. VITAMIN D [Concomitant]
     Active Substance: VITAMIN D NOS
     Indication: Vitamin D deficiency
     Dosage: 1000 INTERNATIONAL UNIT, QD
     Dates: start: 202004
  10. Novalgin [Concomitant]
     Indication: Pain

REACTIONS (3)
  - Trisomy 21 [Recovered/Resolved]
  - Foetal cardiac disorder [Recovered/Resolved]
  - Pregnancy [Recovered/Resolved]

NARRATIVE: CASE EVENT DATE: 20240515
